FAERS Safety Report 7320872-0 (Version None)
Quarter: 2011Q1

REPORT INFORMATION
  Report Type: 
  Country: None (occurrence: None)
  Receive Date: 20110121
  Receipt Date: 20100524
  Transmission Date: 20110831
  Serious: Yes (Other)
  Sender: FDA-Public Use
  Company Number: SOLV00210003102

PATIENT
  Age: 61 Year
  Sex: Female

DRUGS (3)
  1. PREMARIN WITH CONJUGATED ESTROGENS CYCLE [Suspect]
     Indication: OESTROGEN REPLACEMENT THERAPY
     Dosage: 0.45 MILLIGRAM(S) DAILY, .45 MILLIGRAM(S)
     Dates: end: 20081001
  2. PLACEBO [Suspect]
     Indication: OESTROGEN REPLACEMENT THERAPY
     Dosage: DAILY TRANSCUTANEOUS
  3. PROMETRIUM [Suspect]
     Indication: OESTROGEN REPLACEMENT THERAPY
     Dosage: 200 MG DAILY FOR THE FIRST 12 DAYS OF EACH MONTH AT BEDTIME
     Dates: end: 20081001

REACTIONS (1)
  - UTERINE CANCER [None]
